FAERS Safety Report 9689711 (Version 2)
Quarter: 2013Q4

REPORT INFORMATION
  Report Type: Spontaneous
  Country: RO (occurrence: RO)
  Receive Date: 20131115
  Receipt Date: 20131205
  Transmission Date: 20140711
  Serious: Yes (Other)
  Sender: FDA-Public Use
  Company Number: RO-ROCHE-1300359

PATIENT
  Sex: Male

DRUGS (1)
  1. PEGASYS [Suspect]
     Indication: HEPATITIS C
     Dosage: 4TH DOSE ON 31/OCT/2013
     Route: 065
     Dates: start: 20131007

REACTIONS (17)
  - Paraesthesia [Recovered/Resolved]
  - Dizziness [Recovered/Resolved]
  - Hypoacusis [Recovered/Resolved]
  - Cardiovascular disorder [Recovered/Resolved]
  - Myalgia [Recovered/Resolved]
  - Bone pain [Recovered/Resolved]
  - Epistaxis [Recovered/Resolved]
  - Toothache [Recovered/Resolved]
  - Hyperhidrosis [Recovered/Resolved]
  - Tonsillitis [Recovered/Resolved]
  - Suspected counterfeit product [Unknown]
  - Headache [Recovered/Resolved]
  - Circulatory collapse [Recovered/Resolved]
  - Pyrexia [Recovered/Resolved]
  - Abdominal pain [Recovered/Resolved]
  - Back pain [Recovered/Resolved]
  - Odynophagia [Recovered/Resolved]
